FAERS Safety Report 13040286 (Version 1)
Quarter: 2016Q4

REPORT INFORMATION
  Report Type: Spontaneous
  Country: JP (occurrence: JP)
  Receive Date: 20161219
  Receipt Date: 20161219
  Transmission Date: 20170207
  Serious: Yes (Hospitalization)
  Sender: FDA-Public Use
  Company Number: JP-BAYER-2016-236011

PATIENT
  Age: 78 Year
  Sex: Female

DRUGS (6)
  1. AVELOX [Suspect]
     Active Substance: MOXIFLOXACIN HYDROCHLORIDE
     Indication: PNEUMONIA
     Dosage: 400 MG, UNK
     Route: 048
     Dates: start: 20161125, end: 2016
  2. ACETAMINOPHEN. [Concomitant]
     Active Substance: ACETAMINOPHEN
     Indication: PYREXIA
     Dosage: UNK UNK, PRN
     Dates: start: 20161125
  3. ZYPREXA [Concomitant]
     Active Substance: OLANZAPINE
     Dosage: UNK
  4. SILECE [Concomitant]
     Active Substance: FLUNITRAZEPAM
     Dosage: UNK
  5. QUETIAPINE. [Concomitant]
     Active Substance: QUETIAPINE
     Dosage: UNK
     Route: 048
  6. FORTEO [Concomitant]
     Active Substance: TERIPARATIDE
     Dosage: UNK

REACTIONS (2)
  - Hepatic function abnormal [Recovering/Resolving]
  - Blood creatine phosphokinase increased [Recovering/Resolving]

NARRATIVE: CASE EVENT DATE: 2016
